FAERS Safety Report 12241767 (Version 1)
Quarter: 2016Q2

REPORT INFORMATION
  Report Type: Report from Study
  Country: GB (occurrence: GB)
  Receive Date: 20160406
  Receipt Date: 20160406
  Transmission Date: 20160815
  Serious: Yes (Other)
  Sender: FDA-Public Use
  Company Number: GB-JNJFOC-20160400371

PATIENT
  Sex: Female

DRUGS (1)
  1. STELARA [Suspect]
     Active Substance: USTEKINUMAB
     Indication: PSORIASIS
     Dosage: 90 MG ON WEEK 0
     Route: 058
     Dates: start: 20150608

REACTIONS (3)
  - Lower respiratory tract infection [Unknown]
  - Feeling abnormal [Unknown]
  - Psoriasis [Unknown]
